FAERS Safety Report 11618643 (Version 1)
Quarter: 2015Q4

REPORT INFORMATION
  Report Type: Spontaneous
  Country: US (occurrence: US)
  Receive Date: 20151012
  Receipt Date: 20151012
  Transmission Date: 20160304
  Serious: Yes (Other)
  Sender: FDA-Public Use
  Company Number: US-HOSPIRA-3033620

PATIENT
  Age: 36 Year
  Sex: Female

DRUGS (3)
  1. METHOTREXATE [Suspect]
     Active Substance: METHOTREXATE
     Indication: PRODUCT USED FOR UNKNOWN INDICATION
  2. ENBREL [Suspect]
     Active Substance: ETANERCEPT
     Indication: PSORIATIC ARTHROPATHY
     Route: 065
     Dates: start: 20150730
  3. PREDNISONE. [Concomitant]
     Active Substance: PREDNISONE
     Indication: PRODUCT USED FOR UNKNOWN INDICATION

REACTIONS (15)
  - Pharyngeal oedema [Recovered/Resolved]
  - Arthritis [Unknown]
  - Autoimmune disorder [Unknown]
  - Dyspnoea [Unknown]
  - Injection site reaction [Unknown]
  - Hypersensitivity [Recovered/Resolved]
  - Injection site erythema [Unknown]
  - Blister [Recovered/Resolved]
  - Swelling [Recovered/Resolved]
  - Injection site inflammation [Unknown]
  - Fatigue [Unknown]
  - Pruritus generalised [Recovered/Resolved]
  - Weight increased [Unknown]
  - Hepatic enzyme increased [Unknown]
  - Injection site bruising [Unknown]

NARRATIVE: CASE EVENT DATE: 2015
